FAERS Safety Report 21602891 (Version 1)
Quarter: 2022Q4

REPORT INFORMATION
  Report Type: Spontaneous
  Country: US (occurrence: None)
  Receive Date: 20221116
  Receipt Date: 20221116
  Transmission Date: 20230113
  Serious: Yes (Disabling)
  Sender: FDA-Public Use
  Company Number: 2022A323533

PATIENT
  Age: 903 Month
  Sex: Male
  Weight: 88.5 kg

DRUGS (1)
  1. BYDUREON BCISE [Suspect]
     Active Substance: EXENATIDE
     Indication: Diabetes mellitus
     Route: 058
     Dates: start: 202207, end: 202209

REACTIONS (5)
  - Arthralgia [Recovered/Resolved]
  - Incorrect dose administered by device [Unknown]
  - Needle issue [Unknown]
  - Device leakage [Unknown]
  - Device malfunction [Unknown]

NARRATIVE: CASE EVENT DATE: 20220801
